FAERS Safety Report 9674802 (Version 2)
Quarter: 2013Q4

REPORT INFORMATION
  Report Type: Report from Study
  Country: DE (occurrence: DE)
  Receive Date: 20131107
  Receipt Date: 20131107
  Transmission Date: 20140711
  Serious: Yes (Hospitalization)
  Sender: FDA-Public Use
  Company Number: DE-BAYER-2013-100748

PATIENT
  Age: 69 Year
  Sex: Male
  Weight: 90 kg

DRUGS (8)
  1. ALPHARADIN [Suspect]
     Indication: PROSTATE CANCER METASTATIC
     Dosage: 50KBQ (C1D1)
     Route: 042
     Dates: start: 20130814, end: 20130814
  2. ALPHARADIN [Suspect]
     Indication: METASTASES TO BONE
  3. ABIRATERONE [Concomitant]
     Indication: PROSTATE CANCER
     Dosage: 1000MG TOTAL DAILY DOSE
     Route: 048
     Dates: start: 201302
  4. PREDNISOLON [Concomitant]
     Indication: PROSTATE CANCER
     Dosage: 10 MG TOTAL DAILY DOSE
     Route: 048
     Dates: start: 201302
  5. IBUHEXAL [Concomitant]
     Indication: PAIN
     Dosage: 600 MG TOTAL DAILY DOSE
     Route: 048
     Dates: start: 201308
  6. CALCIMAGON-D3 [Concomitant]
     Indication: PROPHYLAXIS
     Dosage: UNK
     Route: 048
     Dates: start: 201108
  7. TARGIN [Concomitant]
     Dosage: 5 MG / 12.5 MG
     Dates: start: 201308
  8. ZOMETA [Concomitant]
     Indication: PROPHYLAXIS

REACTIONS (2)
  - Anaemia [Recovered/Resolved]
  - Anaemia [None]
